FAERS Safety Report 21802414 (Version 11)
Quarter: 2024Q1

REPORT INFORMATION
  Report Type: Spontaneous
  Country: US (occurrence: US)
  Receive Date: 20221231
  Receipt Date: 20240131
  Transmission Date: 20240410
  Serious: No
  Sender: FDA-Public Use
  Company Number: US-PFIZER INC-202101450410

PATIENT
  Age: 62 Year
  Sex: Female
  Weight: 48.073 kg

DRUGS (1)
  1. ESTRING [Suspect]
     Active Substance: ESTRADIOL
     Indication: Atrophic vulvovaginitis
     Dosage: (1 RING), 90 DAYS PER RING
     Route: 067

REACTIONS (1)
  - Device use issue [Unknown]
